FAERS Safety Report 7361356-3 (Version None)
Quarter: 2011Q1

REPORT INFORMATION
  Report Type: 
  Country: None (occurrence: None)
  Receive Date: 20110318
  Receipt Date: 20110310
  Transmission Date: 20110831
  Serious: Yes (Other)
  Sender: FDA-Public Use
  Company Number: B0706370A

PATIENT
  Sex: Male

DRUGS (1)
  1. SALBUTAMOL [Suspect]
     Indication: ASTHMA
     Route: 055
     Dates: start: 20110308, end: 20110308

REACTIONS (4)
  - PRODUCT QUALITY ISSUE [None]
  - FACE OEDEMA [None]
  - PRURITUS [None]
  - RASH [None]
